FAERS Safety Report 4340759-5 (Version None)
Quarter: 2004Q2

REPORT INFORMATION
  Report Type: 
  Country: None (occurrence: None)
  Receive Date: 20040414
  Receipt Date: 20040329
  Transmission Date: 20050107
  Serious: Yes (Hospitalization)
  Sender: FDA-Public Use
  Company Number: 200402464

PATIENT
  Age: 77 Year
  Sex: Male

DRUGS (1)
  1. BOTOX [Suspect]
     Indication: OESOPHAGEAL ACHALASIA

REACTIONS (4)
  - OESOPHAGEAL PERFORATION [None]
  - PNEUMOMEDIASTINUM [None]
  - PNEUMOPERITONEUM [None]
  - POST PROCEDURAL COMPLICATION [None]
